FAERS Safety Report 12334032 (Version 1)
Quarter: 2016Q2

REPORT INFORMATION
  Report Type: Report from Study
  Country: CO (occurrence: CO)
  Receive Date: 20160504
  Receipt Date: 20160504
  Transmission Date: 20160815
  Serious: Yes (Other)
  Sender: FDA-Public Use
  Company Number: CO-ASTELLAS-2016US016550

PATIENT
  Age: 36 Year
  Sex: Male
  Weight: 61 kg

DRUGS (1)
  1. TACROLIMUS. [Suspect]
     Active Substance: TACROLIMUS
     Indication: RENAL TRANSPLANT
     Dosage: 05 MG, ONCE DAILY
     Route: 048
     Dates: start: 20140611

REACTIONS (2)
  - Asphyxia [Not Recovered/Not Resolved]
  - Polycythaemia [Not Recovered/Not Resolved]

NARRATIVE: CASE EVENT DATE: 20151015
